FAERS Safety Report 4347964-2 (Version None)
Quarter: 2004Q2

REPORT INFORMATION
  Report Type: 
  Country: None (occurrence: None)
  Receive Date: 20040422
  Receipt Date: 20040406
  Transmission Date: 20050107
  Serious: Yes (Other)
  Sender: FDA-Public Use
  Company Number: 701790

PATIENT
  Age: 65 Year
  Sex: Male

DRUGS (1)
  1. AMEVIVE [Suspect]
     Indication: PSORIASIS
     Dates: start: 20030201, end: 20030501

REACTIONS (3)
  - ACTINIC KERATOSIS [None]
  - PEMPHIGOID [None]
  - PSORIASIS [None]
